FAERS Safety Report 7462129-3 (Version None)
Quarter: 2011Q2

REPORT INFORMATION
  Report Type: 
  Country: None (occurrence: None)
  Receive Date: 20110506
  Receipt Date: 20101217
  Transmission Date: 20111010
  Serious: No
  Sender: FDA-Public Use
  Company Number: US-BAYER-2010-008479

PATIENT
  Age: 69 Year
  Sex: Female

DRUGS (3)
  1. AVELOX [Suspect]
     Indication: BRONCHITIS
     Dosage: UNK, QD
     Dates: start: 20101206, end: 20101212
  2. ACTONEL [Concomitant]
  3. TESSALON [Concomitant]

REACTIONS (1)
  - NECK PAIN [None]
